FAERS Safety Report 7514490-9 (Version None)
Quarter: 2011Q2

REPORT INFORMATION
  Report Type: 
  Country: None (occurrence: None)
  Receive Date: 20110601
  Receipt Date: 20101123
  Transmission Date: 20111010
  Serious: No
  Sender: FDA-Public Use
  Company Number: US-BAYER-2010-002786

PATIENT
  Age: 54 Year
  Sex: Female

DRUGS (1)
  1. MAGNEVIST [Suspect]
     Indication: NUCLEAR MAGNETIC RESONANCE IMAGING BRAIN
     Dosage: 15 ML, ONCE
     Dates: start: 20101122, end: 20101122

REACTIONS (3)
  - URTICARIA [None]
  - RASH MACULAR [None]
  - PRURITUS [None]
